FAERS Safety Report 8623712 (Version 6)
Quarter: 2015Q4

REPORT INFORMATION
  Report Type: Report from Study
  Country: US (occurrence: US)
  Receive Date: 20120620
  Receipt Date: 20151008
  Transmission Date: 20160305
  Serious: Yes (Death, Other)
  Sender: FDA-Public Use
  Company Number: US-BRISTOL-MYERS SQUIBB COMPANY-16679581

PATIENT
  Age: 54 Year
  Sex: Female
  Weight: 83 kg

DRUGS (1)
  1. IPILIMUMAB [Suspect]
     Active Substance: IPILIMUMAB
     Indication: MALIGNANT MELANOMA
     Dosage: 10 MG/KG, UNK
     Route: 042
     Dates: start: 20120416, end: 20120529

REACTIONS (4)
  - Chronic kidney disease [Unknown]
  - Sudden death [Fatal]
  - Embolism [Fatal]
  - Hyponatraemia [Recovering/Resolving]

NARRATIVE: CASE EVENT DATE: 20120511
